FAERS Safety Report 26009140 (Version 1)
Quarter: 2025Q4

REPORT INFORMATION
  Report Type: Report from Study
  Country: US (occurrence: US)
  Receive Date: 20251107
  Receipt Date: 20251107
  Transmission Date: 20260118
  Serious: Yes (Other)
  Sender: ABBVIE
  Company Number: US-ABBVIE-6535852

PATIENT
  Age: 30 Year
  Sex: Female

DRUGS (5)
  1. SKYRIZI [Suspect]
     Active Substance: RISANKIZUMAB-RZAA
     Indication: Crohn^s disease
     Dosage: TIME INTERVAL: TOTAL: FORM STRENGTH 180MG/1.2M ON WEEK 12
     Route: 058
     Dates: start: 20250417, end: 20250417
  2. SKYRIZI [Suspect]
     Active Substance: RISANKIZUMAB-RZAA
     Dosage: FORM STRENGTH 180MG/1.2M
     Route: 058
     Dates: start: 202507
  3. SKYRIZI [Suspect]
     Active Substance: RISANKIZUMAB-RZAA
     Indication: Crohn^s disease
     Dosage: ON WEEK 0
     Route: 042
     Dates: start: 20250118, end: 20250118
  4. SKYRIZI [Suspect]
     Active Substance: RISANKIZUMAB-RZAA
     Indication: Crohn^s disease
     Dosage: ON WEEK 4
     Route: 042
     Dates: start: 2025, end: 2025
  5. SKYRIZI [Suspect]
     Active Substance: RISANKIZUMAB-RZAA
     Indication: Crohn^s disease
     Dosage: ON WEEK 8
     Route: 042
     Dates: start: 20250315, end: 20250315

REACTIONS (10)
  - Cholecystectomy [Unknown]
  - Flatulence [Unknown]
  - Abdominal pain [Unknown]
  - Fatigue [Unknown]
  - Asthenia [Unknown]
  - Nausea [Unknown]
  - Arthralgia [Unknown]
  - Abdominal distension [Unknown]
  - Diarrhoea [Unknown]
  - Frequent bowel movements [Unknown]

NARRATIVE: CASE EVENT DATE: 20251001
